FAERS Safety Report 8175719-X (Version None)
Quarter: 2012Q1

REPORT INFORMATION
  Report Type: 
  Country: None (occurrence: None)
  Receive Date: 20120301
  Receipt Date: 20120222
  Transmission Date: 20120608
  Serious: Yes (Other)
  Sender: FDA-Public Use
  Company Number: US-AMGEN-USASP2012005685

PATIENT
  Age: 58 Year
  Sex: Female

DRUGS (5)
  1. INTERFERON [Concomitant]
     Indication: HEPATITIS C
     Dosage: UNK
     Dates: start: 20111005
  2. PROCRIT [Suspect]
     Indication: HAEMOLYTIC ANAEMIA
     Dosage: 40000 IU, QWK
     Route: 058
     Dates: start: 20110927, end: 20111017
  3. PROCRIT [Suspect]
     Dosage: 40000 IU, QWK
     Route: 058
     Dates: start: 20111031, end: 20111228
  4. RIBAVIRIN [Concomitant]
     Indication: HEPATITIS C
     Dosage: UNK
     Dates: start: 20111005
  5. PROCRIT [Suspect]
     Dosage: 40000 IU, QWK
     Dates: start: 20050616, end: 20060317

REACTIONS (4)
  - THERAPEUTIC RESPONSE DECREASED [None]
  - IRON DEFICIENCY [None]
  - HAEMOGLOBIN DECREASED [None]
  - APLASIA PURE RED CELL [None]
